FAERS Safety Report 4280515-X (Version None)
Quarter: 2004Q1

REPORT INFORMATION
  Report Type: 
  Country: None (occurrence: None)
  Receive Date: 20040128
  Receipt Date: 20040128
  Transmission Date: 20041129
  Serious: Yes (Hospitalization)
  Sender: FDA-Public Use
  Company Number: None

PATIENT
  Sex: Male

DRUGS (12)
  1. COUMADIN [Suspect]
     Indication: MITRAL VALVE REPLACEMENT
     Dosage: 7.5 MG MONDAY ORAL
     Route: 048
  2. COUMADIN [Suspect]
     Indication: MITRAL VALVE REPLACEMENT
     Dosage: 5 MG ALL OTHER ORAL
     Route: 048
  3. CLONAZEPAM [Concomitant]
  4. CYCLOBENZAPRINE [Concomitant]
  5. FLURAZEPAM [Concomitant]
  6. LISINOPRIL [Concomitant]
  7. MIRTAZAPINE [Concomitant]
  8. MORPHINE [Concomitant]
  9. OLANZAPINE [Concomitant]
  10. RANITIDINE [Concomitant]
  11. SERTRALINE HCL [Concomitant]
  12. SILDENAFIL [Concomitant]

REACTIONS (3)
  - ABDOMINAL DISTENSION [None]
  - EPISTAXIS [None]
  - RECTAL HAEMORRHAGE [None]
